FAERS Safety Report 6080262-8 (Version None)
Quarter: 2009Q1

REPORT INFORMATION
  Report Type: 
  Country: None (occurrence: None)
  Receive Date: 20090121
  Receipt Date: 20080702
  Transmission Date: 20090719
  Serious: Yes (Other)
  Sender: FDA-Public Use
  Company Number: HQWYE108009AUG04

PATIENT
  Age: 55 Year
  Sex: Female

DRUGS (6)
  1. PREMPRO [Suspect]
  2. ESTRATEST [Suspect]
  3. FEMHRT [Suspect]
  4. PREMARIN [Suspect]
  5. PROMETRIUM [Suspect]
  6. PROVERA [Suspect]

REACTIONS (1)
  - BREAST CANCER IN SITU [None]
